FAERS Safety Report 18693062 (Version 1)
Quarter: 2021Q1

REPORT INFORMATION
  Report Type: Spontaneous
  Country: CN (occurrence: CN)
  Receive Date: 20210104
  Receipt Date: 20210104
  Transmission Date: 20210419
  Serious: Yes (Other)
  Sender: FDA-Public Use
  Company Number: CN-JIANGSU HENGRUI MEDICINE CO., LTD.-2103847

PATIENT
  Age: 13 Year
  Sex: Male
  Weight: 53 kg

DRUGS (1)
  1. LETROZOLE TABLETS USP, 2.5?MG [Suspect]
     Active Substance: LETROZOLE
     Indication: PRODUCT USED FOR UNKNOWN INDICATION
     Route: 048

REACTIONS (2)
  - Erectile dysfunction [Not Recovered/Not Resolved]
  - Product use issue [Unknown]
